FAERS Safety Report 9998970 (Version 1)
Quarter: 2014Q1

REPORT INFORMATION
  Report Type: Report from Study
  Country: DE (occurrence: DE)
  Receive Date: 20140312
  Receipt Date: 20140312
  Transmission Date: 20141002
  Serious: Yes (Other)
  Sender: FDA-Public Use
  Company Number: DE-BEH-2014041047

PATIENT
  Age: 60 Year
  Sex: Male
  Weight: 75 kg

DRUGS (8)
  1. PRIVIGEN [Suspect]
     Route: 042
     Dates: start: 20130301, end: 20130301
  2. PRIVIGEN [Suspect]
  3. PRIVIGEN [Suspect]
     Indication: SECONDARY IMMUNODEFICIENCY
  4. PRIVIGEN [Suspect]
     Route: 042
     Dates: start: 20130405, end: 20130405
  5. MABTHERA [Concomitant]
  6. DEXAMETHASON [Concomitant]
  7. RANITIC [Concomitant]
  8. FENISTIL [Concomitant]

REACTIONS (1)
  - Diverticulitis [Recovered/Resolved]
